FAERS Safety Report 18718170 (Version 1)
Quarter: 2021Q1

REPORT INFORMATION
  Report Type: Spontaneous
  Country: US (occurrence: US)
  Receive Date: 20210108
  Receipt Date: 20210108
  Transmission Date: 20210419
  Serious: Yes (Hospitalization)
  Sender: FDA-Public Use
  Company Number: US-PFIZER INC-2021005154

PATIENT
  Age: 90 Year
  Sex: Female

DRUGS (2)
  1. SERTRALINE HCL [Suspect]
     Active Substance: SERTRALINE HYDROCHLORIDE
     Dosage: 100 MG, DAILY
  2. SERTRALINE HCL [Suspect]
     Active Substance: SERTRALINE HYDROCHLORIDE
     Dosage: 25 MG, DAILY

REACTIONS (7)
  - Apathy [Unknown]
  - Gait disturbance [Unknown]
  - Decreased interest [Unknown]
  - Aggression [Unknown]
  - Depression [Unknown]
  - Screaming [Unknown]
  - Coronavirus infection [Unknown]
